FAERS Safety Report 25084890 (Version 1)
Quarter: 2025Q1

REPORT INFORMATION
  Report Type: Spontaneous
  Country: US (occurrence: US)
  Receive Date: 20250317
  Receipt Date: 20250317
  Transmission Date: 20250408
  Serious: No
  Sender: MILLICENT HOLDINGS
  Company Number: US-Millicent Holdings Ltd.-MILL20250112

PATIENT
  Age: 55 Year
  Sex: Female

DRUGS (3)
  1. FEMRING [Suspect]
     Active Substance: ESTRADIOL ACETATE
     Indication: Menopausal symptoms
     Route: 067
     Dates: start: 20250214
  2. FEMRING [Suspect]
     Active Substance: ESTRADIOL ACETATE
     Route: 067
     Dates: end: 20250214
  3. ESTROGENS [Concomitant]
     Active Substance: ESTROGENS
     Indication: Menopausal symptoms
     Route: 062

REACTIONS (5)
  - Drug effect less than expected [Not Recovered/Not Resolved]
  - Hot flush [Not Recovered/Not Resolved]
  - Sleep disorder [Not Recovered/Not Resolved]
  - Device expulsion [Unknown]
  - Off label use [None]

NARRATIVE: CASE EVENT DATE: 20250219
